FAERS Safety Report 9291109 (Version 1)
Quarter: 2013Q2

REPORT INFORMATION
  Report Type: Spontaneous
  Country: US (occurrence: US)
  Receive Date: 20130515
  Receipt Date: 20130515
  Transmission Date: 20140414
  Serious: Yes (Hospitalization)
  Sender: FDA-Public Use
  Company Number: 2013SP001310

PATIENT
  Age: 88 Year
  Sex: Female
  Weight: 58 kg

DRUGS (12)
  1. BROVANA [Suspect]
     Indication: BRONCHIECTASIS
     Route: 055
     Dates: start: 2012
  2. NITROGLYCERIN [Concomitant]
     Indication: PRODUCT USED FOR UNKNOWN INDICATION
     Route: 060
  3. BUDESONIDE [Concomitant]
     Indication: CHRONIC OBSTRUCTIVE PULMONARY DISEASE
     Route: 055
  4. METOPROLOL [Concomitant]
     Indication: PRODUCT USED FOR UNKNOWN INDICATION
     Route: 048
  5. FUROSEMIDE [Concomitant]
     Indication: FLUID RETENTION
     Route: 048
  6. WARFARIN [Concomitant]
     Indication: ANTICOAGULANT THERAPY
     Route: 048
  7. POTASSIUM [Concomitant]
     Indication: PRODUCT USED FOR UNKNOWN INDICATION
     Route: 048
  8. ISOSORBIDE MONONITRATE [Concomitant]
     Indication: ANGINA PECTORIS
     Route: 048
  9. DIGOXIN [Concomitant]
     Indication: PRODUCT USED FOR UNKNOWN INDICATION
     Route: 048
  10. LOSARTAN [Concomitant]
     Indication: PRODUCT USED FOR UNKNOWN INDICATION
     Route: 048
  11. XOPENEX HFA INHALATION AEROSOL [Concomitant]
     Indication: PRODUCT USED FOR UNKNOWN INDICATION
     Route: 055
  12. MUCINEX [Concomitant]
     Indication: COUGH
     Route: 048

REACTIONS (5)
  - Pneumonia [Unknown]
  - Pseudomonas infection [Unknown]
  - Cough [Not Recovered/Not Resolved]
  - Productive cough [Not Recovered/Not Resolved]
  - Dyspnoea [Not Recovered/Not Resolved]
